FAERS Safety Report 4713303-8 (Version None)
Quarter: 2005Q3

REPORT INFORMATION
  Report Type: 
  Country: None (occurrence: None)
  Receive Date: 20050713
  Receipt Date: 20050704
  Transmission Date: 20060218
  Serious: Yes (Life-Threatening, Hospitalization, Other)
  Sender: FDA-Public Use
  Company Number: BR-GLAXOSMITHKLINE-A0565040A

PATIENT
  Age: 49 Year
  Sex: Female
  Weight: 85 kg

DRUGS (2)
  1. AROPAX [Suspect]
     Indication: DEPRESSION
     Dosage: 5MG PER DAY
     Route: 048
     Dates: start: 20050501, end: 20050501
  2. ALPRAZOLAM [Concomitant]
     Route: 048
     Dates: start: 20030101

REACTIONS (7)
  - CARDIAC ARREST [None]
  - COMA [None]
  - DRUG HYPERSENSITIVITY [None]
  - GENERALISED OEDEMA [None]
  - HYPERSENSITIVITY [None]
  - LARYNGEAL OEDEMA [None]
  - VISION BLURRED [None]
